FAERS Safety Report 12001227 (Version 1)
Quarter: 2016Q1

REPORT INFORMATION
  Report Type: Spontaneous
  Country: US (occurrence: US)
  Receive Date: 20160204
  Receipt Date: 20160204
  Transmission Date: 20160526
  Serious: No
  Sender: FDA-Public Use
  Company Number: US-B.I. PHARMACEUTICALS,INC./RIDGEFIELD-2016-BI-04123BP

PATIENT
  Sex: Female
  Weight: 94 kg

DRUGS (1)
  1. PRADAXA [Suspect]
     Active Substance: DABIGATRAN ETEXILATE MESYLATE
     Indication: ATRIAL FIBRILLATION
     Route: 048
     Dates: start: 2011, end: 2013

REACTIONS (3)
  - Rectal haemorrhage [Recovered/Resolved]
  - Blood creatinine increased [Not Recovered/Not Resolved]
  - Mouth haemorrhage [Not Recovered/Not Resolved]

NARRATIVE: CASE EVENT DATE: 2011
